FAERS Safety Report 13575975 (Version 2)
Quarter: 2021Q1

REPORT INFORMATION
  Report Type: Spontaneous
  Country: US (occurrence: US)
  Receive Date: 20170524
  Receipt Date: 20210216
  Transmission Date: 20210419
  Serious: Yes (Other)
  Sender: FDA-Public Use
  Company Number: US-PFIZER INC-2017223185

PATIENT
  Age: 64 Year
  Sex: Female

DRUGS (4)
  1. EFFEXOR XR [Suspect]
     Active Substance: VENLAFAXINE HYDROCHLORIDE
     Dosage: UNK (SHE CURRENTLY TAKES 75 MG IN THE MORNING AND 75 IN THE NIGHT BUT SHE HAS TRIED ALSO THE 37.5 MG
  2. EFFEXOR XR [Suspect]
     Active Substance: VENLAFAXINE HYDROCHLORIDE
     Indication: DEPRESSION
     Dosage: 37.5 MG, UNK
     Dates: start: 1997
  3. EFFEXOR XR [Suspect]
     Active Substance: VENLAFAXINE HYDROCHLORIDE
     Dosage: 150 MG, UNK
  4. EFFEXOR XR [Suspect]
     Active Substance: VENLAFAXINE HYDROCHLORIDE
     Dosage: 150 MG, 1X/DAY (SOMETIMES TAKES BOTH 75 MG CAPSULES IN THE MORNING WITHOUT ANY PROBLEM.) (TAKE THE 1

REACTIONS (14)
  - Vomiting [Unknown]
  - Depersonalisation/derealisation disorder [Unknown]
  - Seizure [Unknown]
  - Cardiac disorder [Unknown]
  - Diarrhoea [Unknown]
  - Hyperhidrosis [Unknown]
  - Malaise [Unknown]
  - Off label use [Unknown]
  - Burning sensation [Not Recovered/Not Resolved]
  - Chest pain [Unknown]
  - Dizziness [Unknown]
  - Swelling face [Unknown]
  - Withdrawal syndrome [Unknown]
  - Dry mouth [Unknown]

NARRATIVE: CASE EVENT DATE: 2016
